FAERS Safety Report 9738934 (Version 1)
Quarter: 2013Q4

REPORT INFORMATION
  Report Type: Spontaneous
  Country: US (occurrence: US)
  Receive Date: 20131209
  Receipt Date: 20131209
  Transmission Date: 20140711
  Serious: No
  Sender: FDA-Public Use
  Company Number: US-BAYER-2013-148561

PATIENT
  Age: 86 Year
  Sex: Male
  Weight: 86.17 kg

DRUGS (2)
  1. ALEVE GELCAPS [Suspect]
     Indication: ARTHRALGIA
     Dosage: 1 DF, BID
     Route: 048
     Dates: start: 2012, end: 20131126
  2. OMEGA [CARBINOXAMINE MALEATE] [Concomitant]

REACTIONS (3)
  - Drug ineffective [None]
  - Incorrect drug administration duration [None]
  - Drug ineffective [None]
